FAERS Safety Report 10985742 (Version 1)
Quarter: 2015Q1

REPORT INFORMATION
  Report Type: Spontaneous
  Country: US (occurrence: None)
  Receive Date: 20150304
  Receipt Date: 20150304
  Transmission Date: 20150721
  Serious: Yes (Hospitalization)
  Sender: FDA-Public Use
  Company Number: GBI002301

PATIENT
  Age: 75 Year
  Sex: Female

DRUGS (5)
  1. PLASMA, FRESH FROZEN [Concomitant]
     Active Substance: HUMAN PLASMA
  2. FROZEN (CON) [Concomitant]
  3. PLATELET (CON) [Concomitant]
  4. PROFILNINE SD [Suspect]
     Active Substance: FACTOR IX COMPLEX
     Indication: PRODUCT USED FOR UNKNOWN INDICATION
     Dosage: 2900 IU, 1X, IV
     Route: 042
     Dates: start: 20130405, end: 20130405
  5. FACTOR VIII (CON) [Concomitant]

REACTIONS (2)
  - Cerebrovascular accident [None]
  - Pulmonary embolism [None]

NARRATIVE: CASE EVENT DATE: 201304
